FAERS Safety Report 5166901-4 (Version None)
Quarter: 2006Q4

REPORT INFORMATION
  Report Type: 
  Country: None (occurrence: None)
  Receive Date: 20061204
  Receipt Date: 20061204
  Transmission Date: 20070319
  Serious: Yes (Other)
  Sender: FDA-Public Use
  Company Number: None

PATIENT
  Age: 5 Year
  Sex: Male
  Weight: 16.3295 kg

DRUGS (2)
  1. AMOXICILLIN + CLAVULANATE POTASSIUM [Suspect]
     Indication: SINUSITIS
     Dosage: 3/4 TEASPOON 2 TIMES A DAY PO
     Route: 048
     Dates: start: 20061121, end: 20061129
  2. OMNICEF [Suspect]
     Indication: SINUSITIS
     Dosage: 3/4 TEASPOON ONCE A DAY PO
     Route: 048
     Dates: start: 20061201, end: 20061202

REACTIONS (5)
  - ABDOMINAL PAIN UPPER [None]
  - HEADACHE [None]
  - NAUSEA [None]
  - PRURITUS [None]
  - VOMITING [None]
